FAERS Safety Report 13408251 (Version 1)
Quarter: 2017Q2

REPORT INFORMATION
  Report Type: Spontaneous
  Country: US (occurrence: US)
  Receive Date: 20170405
  Receipt Date: 20170405
  Transmission Date: 20170830
  Serious: Yes (Other)
  Sender: FDA-Public Use
  Company Number: None

PATIENT
  Age: 20 Year
  Sex: Male
  Weight: 74.25 kg

DRUGS (1)
  1. METHYLPREDNISOLONE. [Suspect]
     Active Substance: METHYLPREDNISOLONE
     Indication: RASH
     Dosage: ?          QUANTITY:21 TABLET(S);?
     Route: 048

REACTIONS (6)
  - Abnormal behaviour [None]
  - Intentional self-injury [None]
  - Paranoia [None]
  - Aggression [None]
  - Hallucination, auditory [None]
  - Psychotic disorder [None]

NARRATIVE: CASE EVENT DATE: 20170212
